FAERS Safety Report 22100425 (Version 1)
Quarter: 2023Q1

REPORT INFORMATION
  Report Type: Other
  Country: BR (occurrence: None)
  Receive Date: 20230316
  Receipt Date: 20230316
  Transmission Date: 20230417
  Serious: No
  Sender: FDA-Public Use
  Company Number: BR-ROCHE-3308189

PATIENT
  Age: 62 Year
  Sex: Female
  Weight: 68 kg

DRUGS (2)
  1. OCREVUS [Suspect]
     Active Substance: OCRELIZUMAB
     Indication: Multiple sclerosis
     Route: 042
     Dates: start: 20220215
  2. ESCITALOPRAM OXALATE [Concomitant]
     Active Substance: ESCITALOPRAM OXALATE
     Dosage: LATER 25 MG

REACTIONS (12)
  - COVID-19 [Unknown]
  - Oropharyngeal pain [Unknown]
  - Pruritus [Unknown]
  - Fatigue [Unknown]
  - Discomfort [Unknown]
  - Urinary incontinence [Unknown]
  - Weight decreased [Unknown]
  - Depression [Unknown]
  - Laziness [Unknown]
  - Teeth brittle [Unknown]
  - Tooth disorder [Unknown]
  - Tooth injury [Unknown]

NARRATIVE: CASE EVENT DATE: 20220915
